FAERS Safety Report 12082931 (Version 1)
Quarter: 2016Q1

REPORT INFORMATION
  Report Type: Report from Study
  Country: US (occurrence: US)
  Receive Date: 20160217
  Receipt Date: 20160217
  Transmission Date: 20160526
  Serious: Yes (Other)
  Sender: FDA-Public Use
  Company Number: US-ROCHE-1712596

PATIENT

DRUGS (1)
  1. ALTEPLASE [Suspect]
     Active Substance: ALTEPLASE
     Indication: FIBRINOLYSIS
     Dosage: 0.1 MG/KG TWICE A DAY ON DAYS 1 AND 3 OR ON DAYS 2 AND 4
     Route: 050

REACTIONS (1)
  - Streptococcal infection [Unknown]
